FAERS Safety Report 9376578 (Version 2)
Quarter: 2013Q3

REPORT INFORMATION
  Report Type: Spontaneous
  Country: US (occurrence: US)
  Receive Date: 20130701
  Receipt Date: 20130729
  Transmission Date: 20140515
  Serious: Yes (Congenital Anomaly)
  Sender: FDA-Public Use
  Company Number: US-BIOGENIDEC-2013BI056484

PATIENT
  Sex: 0

DRUGS (4)
  1. AVONEX [Suspect]
     Indication: MATERNAL EXPOSURE TIMING UNSPECIFIED
     Route: 030
     Dates: start: 19970401
  2. AVONEX [Suspect]
     Indication: MATERNAL EXPOSURE TIMING UNSPECIFIED
     Route: 030
     Dates: start: 20000416, end: 2004
  3. AVONEX [Suspect]
     Indication: MATERNAL EXPOSURE TIMING UNSPECIFIED
     Route: 030
     Dates: start: 20090213
  4. AVONEX [Suspect]
     Indication: MATERNAL EXPOSURE TIMING UNSPECIFIED

REACTIONS (1)
  - No adverse event [Unknown]
